FAERS Safety Report 25379946 (Version 2)
Quarter: 2025Q2

REPORT INFORMATION
  Report Type: Spontaneous
  Country: JP (occurrence: JP)
  Receive Date: 20250530
  Receipt Date: 20250625
  Transmission Date: 20250717
  Serious: Yes (Other)
  Sender: SANOFI AVENTIS
  Company Number: JP-SA-2025SA153796

PATIENT
  Age: 77 Year
  Sex: Male

DRUGS (3)
  1. OXALIPLATIN [Suspect]
     Active Substance: OXALIPLATIN
     Indication: Gastric cancer stage III
     Route: 041
  2. TS-1 [Concomitant]
     Active Substance: GIMERACIL\OTERACIL POTASSIUM\TEGAFUR
     Indication: Gastric cancer stage III
     Route: 048
  3. NIVOLUMAB [Concomitant]
     Active Substance: NIVOLUMAB
     Indication: Gastric cancer stage III
     Route: 041

REACTIONS (2)
  - Malaise [Unknown]
  - Fatigue [Unknown]
